FAERS Safety Report 4425679-X (Version None)
Quarter: 2004Q3

REPORT INFORMATION
  Report Type: 
  Country: None (occurrence: None)
  Receive Date: 20040810
  Receipt Date: 20040702
  Transmission Date: 20050211
  Serious: Yes (Other)
  Sender: FDA-Public Use
  Company Number: 2004US-00336

PATIENT
  Age: 20 Year
  Sex: Female

DRUGS (3)
  1. ISOTRETINOIN [Suspect]
     Indication: ACNE CYSTIC
     Dosage: ORAL
     Route: 048
     Dates: start: 20040508, end: 20040601
  2. ISOTRETINOIN [Suspect]
     Indication: ACNE CYSTIC
     Dosage: ORAL
     Route: 048
     Dates: start: 20040623
  3. ANTIDEPRESSANTS [Concomitant]

REACTIONS (3)
  - DEPRESSION [None]
  - DISEASE RECURRENCE [None]
  - SUICIDAL IDEATION [None]
